FAERS Safety Report 11540010 (Version 1)
Quarter: 2015Q3

REPORT INFORMATION
  Report Type: Spontaneous
  Country: US (occurrence: US)
  Receive Date: 20150923
  Receipt Date: 20150923
  Transmission Date: 20151125
  Serious: No
  Sender: FDA-Public Use
  Company Number: US-009507513-1509USA007673

PATIENT
  Age: 73 Year
  Sex: Female

DRUGS (3)
  1. BELSOMRA [Suspect]
     Active Substance: SUVOREXANT
     Dosage: TWO DOSES OF 10 MG AT THE SAME TIME BEFORE BED
     Route: 048
     Dates: start: 20150912, end: 20150912
  2. BELSOMRA [Suspect]
     Active Substance: SUVOREXANT
     Indication: INSOMNIA
     Dosage: 40 MG IN TOTAL
     Route: 048
     Dates: start: 20150911, end: 20150911
  3. CLONAZEPAM. [Concomitant]
     Active Substance: CLONAZEPAM

REACTIONS (4)
  - Drug ineffective [Not Recovered/Not Resolved]
  - Inappropriate schedule of drug administration [Unknown]
  - Overdose [Unknown]
  - Drug ineffective [Not Recovered/Not Resolved]

NARRATIVE: CASE EVENT DATE: 20150911
